FAERS Safety Report 13304830 (Version 1)
Quarter: 2017Q1

REPORT INFORMATION
  Report Type: Spontaneous
  Country: BR (occurrence: BR)
  Receive Date: 20170308
  Receipt Date: 20170308
  Transmission Date: 20170428
  Serious: Yes (Hospitalization, Other)
  Sender: FDA-Public Use
  Company Number: BR-AMGEN-BRASP2017033770

PATIENT
  Age: 56 Year
  Sex: Female
  Weight: 55 kg

DRUGS (4)
  1. DECADRON [Concomitant]
     Active Substance: DEXAMETHASONE
     Dosage: UNK UNK, Q12H
  2. VECTIBIX [Suspect]
     Active Substance: PANITUMUMAB
     Indication: HEPATIC NEOPLASM
     Dosage: UNK UNK, Q2WK (ADMINISTERED IN THE MORNING, FOR TWO DAYS EVERY 15 DAYS)
     Route: 065
     Dates: end: 201612
  3. VECTIBIX [Suspect]
     Active Substance: PANITUMUMAB
     Indication: MALIGNANT PERITONEAL NEOPLASM
  4. ARCOXIA [Concomitant]
     Active Substance: ETORICOXIB
     Dosage: UNK UNK, QD

REACTIONS (15)
  - Lung neoplasm [Unknown]
  - Adverse drug reaction [Unknown]
  - Off label use [Unknown]
  - Dizziness [Recovered/Resolved]
  - Visual impairment [Recovered/Resolved]
  - Malignant neoplasm progression [Not Recovered/Not Resolved]
  - Fatigue [Not Recovered/Not Resolved]
  - Hepatic cirrhosis [Not Recovered/Not Resolved]
  - Bone neoplasm [Not Recovered/Not Resolved]
  - Platelet count decreased [Not Recovered/Not Resolved]
  - Pain in extremity [Not Recovered/Not Resolved]
  - Spinal pain [Not Recovered/Not Resolved]
  - Faeces hard [Recovered/Resolved]
  - Arthralgia [Not Recovered/Not Resolved]
  - Gait disturbance [Unknown]
